FAERS Safety Report 5887704-9 (Version None)
Quarter: 2008Q3

REPORT INFORMATION
  Report Type: 
  Country: None (occurrence: None)
  Receive Date: 20080916
  Receipt Date: 20080916
  Transmission Date: 20090109
  Serious: Yes (Hospitalization)
  Sender: FDA-Public Use
  Company Number: None

PATIENT
  Age: 54 Year
  Sex: Female
  Weight: 70 kg

DRUGS (11)
  1. TAXOTERE [Suspect]
     Indication: BREAST CANCER
     Dosage: IV  (DURATION: ONE CYCLE)
     Route: 042
  2. HERCEPTIN [Suspect]
     Indication: BREAST CANCER
     Dosage: IV  (DURATION: ONE CYCLE)
     Route: 042
  3. ACYCLOVIR [Concomitant]
  4. DIFLUCAN [Concomitant]
  5. PREDNISONE [Concomitant]
  6. ALBUTEROL [Concomitant]
  7. INSULIN [Concomitant]
  8. ZOLOFT [Concomitant]
  9. CEFEPIME [Concomitant]
  10. PROTONIX [Concomitant]
  11. SEPTRA [Concomitant]

REACTIONS (4)
  - FATIGUE [None]
  - NO THERAPEUTIC RESPONSE [None]
  - PYREXIA [None]
  - UNEVALUABLE EVENT [None]
